FAERS Safety Report 8429802-1 (Version None)
Quarter: 2012Q2

REPORT INFORMATION
  Report Type: 
  Country: None (occurrence: None)
  Receive Date: 20120612
  Receipt Date: 20120608
  Transmission Date: 20120825
  Serious: No
  Sender: FDA-Public Use
  Company Number: US-ASTRAZENECA-2012SE38725

PATIENT
  Age: 32 Year
  Sex: Male
  Weight: 80.7 kg

DRUGS (2)
  1. OLEPTRO [Concomitant]
  2. SEROQUEL XR [Suspect]
     Indication: DEPRESSION
     Route: 048
     Dates: start: 20110501

REACTIONS (6)
  - WEIGHT INCREASED [None]
  - FATIGUE [None]
  - DRY MOUTH [None]
  - CONSTIPATION [None]
  - TRIGEMINAL NEURALGIA [None]
  - SOMNOLENCE [None]
